FAERS Safety Report 5445845-4 (Version None)
Quarter: 2007Q3

REPORT INFORMATION
  Report Type: 
  Country: None (occurrence: None)
  Receive Date: 20070904
  Receipt Date: 20070821
  Transmission Date: 20080115
  Serious: Yes (Other)
  Sender: FDA-Public Use
  Company Number: FABR-12129

PATIENT
  Age: 41 Year
  Sex: Male
  Weight: 79 kg

DRUGS (4)
  1. FABRAZYME [Suspect]
     Indication: FABRY'S DISEASE
     Dosage: 70 MG/KG Q2WKS IV
     Route: 042
     Dates: start: 20070220
  2. TORSEMIDE [Concomitant]
  3. CANDESARTAN CILEXETIL [Concomitant]
  4. BISOPROLOL [Concomitant]

REACTIONS (3)
  - ANAPHYLACTIC REACTION [None]
  - CHILLS [None]
  - PAIN IN EXTREMITY [None]
